FAERS Safety Report 4701583-4 (Version None)
Quarter: 2005Q2

REPORT INFORMATION
  Report Type: 
  Country: None (occurrence: None)
  Receive Date: 20050627
  Receipt Date: 20050615
  Transmission Date: 20051028
  Serious: Yes (Other)
  Sender: FDA-Public Use
  Company Number: 2005088706

PATIENT
  Age: 62 Year
  Sex: Male

DRUGS (8)
  1. SPIRONOLACTONE [Suspect]
     Indication: CARDIAC DISORDER
     Dosage: 50 MG
  2. DILTIAZEM [Suspect]
     Indication: MYOCARDIAL ISCHAEMIA
     Dosage: 180 MG
  3. FUROSEMIDE [Suspect]
     Indication: CARDIAC FAILURE CONGESTIVE
     Dosage: 80 MG
  4. METFORMIN HCL [Suspect]
     Indication: DIABETES MELLITUS
     Dosage: 2 GRAM
  5. ISOSORBIDE DINITRATE [Suspect]
     Indication: MYOCARDIAL ISCHAEMIA
     Dosage: 120 MG
  6. ASPIRIN [Suspect]
     Indication: MYOCARDIAL ISCHAEMIA
     Dosage: 100 MG
  7. AMIODARONE HCL [Suspect]
     Indication: ARRHYTHMIA
     Dosage: 200 MG
  8. PERHEXILINE MALEATE                (PERHEXILINE MALEATE) [Suspect]
     Indication: MYOCARDIAL ISCHAEMIA
     Dosage: 100 MG

REACTIONS (3)
  - HEPATIC CIRRHOSIS [None]
  - HEPATIC FIBROSIS [None]
  - HEPATIC NECROSIS [None]
